FAERS Safety Report 7787344-0 (Version None)
Quarter: 2011Q3

REPORT INFORMATION
  Report Type: 
  Country: None (occurrence: None)
  Receive Date: 20110929
  Receipt Date: 20110919
  Transmission Date: 20111222
  Serious: No
  Sender: FDA-Public Use
  Company Number: US-B.I. PHARMACEUTICALS,INC./RIDGEFIELD-2011-BP-19713BP

PATIENT
  Age: 79 Year
  Sex: Female

DRUGS (9)
  1. SPIRIVA [Suspect]
     Indication: BRONCHIECTASIS
  2. NORVASC [Concomitant]
     Indication: HYPERTENSION
  3. LOVAZA [Concomitant]
     Indication: SUPPLEMENTATION THERAPY
  4. TOPROL-XL [Concomitant]
     Indication: HYPERTENSION
  5. FISH OIL [Concomitant]
     Indication: SUPPLEMENTATION THERAPY
  6. OMEGA 6 [Concomitant]
     Indication: SUPPLEMENTATION THERAPY
  7. SPIRIVA [Suspect]
     Indication: CHRONIC OBSTRUCTIVE PULMONARY DISEASE
     Dosage: 18 MCG
     Route: 055
     Dates: start: 20110801
  8. LYRICA [Concomitant]
     Indication: NEUROPATHY PERIPHERAL
  9. MULTI-VITAMIN [Concomitant]
     Indication: VITAMIN SUPPLEMENTATION

REACTIONS (2)
  - DRUG INEFFECTIVE [None]
  - DYSPHONIA [None]
